FAERS Safety Report 4706652-0 (Version None)
Quarter: 2005Q3

REPORT INFORMATION
  Report Type: 
  Country: None (occurrence: None)
  Receive Date: 20050705
  Receipt Date: 20050623
  Transmission Date: 20060218
  Serious: Yes (Other)
  Sender: FDA-Public Use
  Company Number: SE-ROCHE-408647

PATIENT
  Age: 44 Year
  Sex: Female

DRUGS (2)
  1. COPEGUS [Suspect]
     Indication: HEPATITIS C
     Route: 048
     Dates: start: 20050316
  2. INTRON A [Suspect]
     Indication: HEPATITIS C
     Dosage: STRENGTH AND FORMULATION REPORTED AS : 10 MIU SOL FOR INJ.
     Route: 042
     Dates: start: 20050316

REACTIONS (4)
  - CONFUSIONAL STATE [None]
  - DEPRESSION [None]
  - MANIA [None]
  - STRESS [None]
